FAERS Safety Report 17122791 (Version 2)
Quarter: 2019Q4

REPORT INFORMATION
  Report Type: Spontaneous
  Country: AT (occurrence: AT)
  Receive Date: 20191206
  Receipt Date: 20191217
  Transmission Date: 20200122
  Serious: Yes (Death)
  Sender: FDA-Public Use
  Company Number: AT-BAYER-2019-218736

PATIENT
  Age: 21 Year
  Sex: Female

DRUGS (1)
  1. YASMINELLE [Suspect]
     Active Substance: DROSPIRENONE
     Route: 048

REACTIONS (2)
  - Pulmonary embolism [Fatal]
  - Circulatory collapse [Fatal]

NARRATIVE: CASE EVENT DATE: 201101
